FAERS Safety Report 8204742-1 (Version None)
Quarter: 2012Q1

REPORT INFORMATION
  Report Type: 
  Country: None (occurrence: None)
  Receive Date: 20120313
  Receipt Date: 20120229
  Transmission Date: 20120608
  Serious: Yes (Hospitalization)
  Sender: FDA-Public Use
  Company Number: US-ELI_LILLY_AND_COMPANY-US201009003718

PATIENT
  Sex: Female
  Weight: 72 kg

DRUGS (5)
  1. FORTEO [Suspect]
     Indication: OSTEOPOROSIS
     Dosage: 20 UG, QD
     Route: 058
  2. FORTEO [Suspect]
     Dosage: 20 UG, QD
     Route: 058
  3. VICODIN [Concomitant]
  4. ANTI-NAUSEA [Concomitant]
     Indication: NAUSEA
     Dosage: UNK, 2/W
  5. FORTEO [Suspect]
     Dosage: 20 UG, QD
     Route: 058

REACTIONS (8)
  - BACK PAIN [None]
  - OEDEMA PERIPHERAL [None]
  - DYSPHONIA [None]
  - HOSPITALISATION [None]
  - NASOPHARYNGITIS [None]
  - PAIN [None]
  - FLUID RETENTION [None]
  - DIARRHOEA [None]
